FAERS Safety Report 9541672 (Version 1)
Quarter: 2013Q2

REPORT INFORMATION
  Report Type: Spontaneous
  Country: US (occurrence: None)
  Receive Date: 20130524
  Receipt Date: 20130524
  Transmission Date: 20140414
  Serious: Yes (Other)
  Sender: FDA-Public Use
  Company Number: PHEH2013US002542

PATIENT
  Age: 63 Year
  Sex: Female

DRUGS (3)
  1. GILENYA [Suspect]
     Route: 048
  2. FAMPRIDINE (FAMPRIDINE) [Concomitant]
  3. NORTRIPTYLINE (NORTRIPTYLINE) [Concomitant]

REACTIONS (2)
  - Stress [None]
  - Multiple sclerosis [None]
